FAERS Safety Report 5822119-0 (Version None)
Quarter: 2008Q3

REPORT INFORMATION
  Report Type: 
  Country: None (occurrence: None)
  Receive Date: 20080725
  Receipt Date: 20080721
  Transmission Date: 20090109
  Serious: Yes (Death, Hospitalization)
  Sender: FDA-Public Use
  Company Number: US-JNJFOC-20071204507

PATIENT
  Sex: Female
  Weight: 73.03 kg

DRUGS (1)
  1. ORTHO EVRA [Suspect]
     Indication: CONTRACEPTION
     Route: 062
     Dates: end: 20060116

REACTIONS (26)
  - BASAL GANGLIA HAEMORRHAGE [None]
  - BLOOD CALCIUM INCREASED [None]
  - BLOOD HOMOCYSTEINE DECREASED [None]
  - BRAIN DEATH [None]
  - CEREBROVASCULAR ACCIDENT [None]
  - DEEP VEIN THROMBOSIS [None]
  - DRUG EXPOSURE DURING PREGNANCY [None]
  - ESSENTIAL HYPERTENSION [None]
  - HAEMORRHAGIC STROKE [None]
  - INTRACRANIAL PRESSURE INCREASED [None]
  - LABOUR INDUCTION [None]
  - LOSS OF CONSCIOUSNESS [None]
  - MIGRAINE [None]
  - NAUSEA [None]
  - NEUROLOGICAL SYMPTOM [None]
  - OEDEMA [None]
  - PHOTOPHOBIA [None]
  - PNEUMOCEPHALUS [None]
  - PNEUMONIA [None]
  - POST LUMBAR PUNCTURE SYNDROME [None]
  - POST PROCEDURAL COMPLICATION [None]
  - PRE-ECLAMPSIA [None]
  - PREGNANCY [None]
  - PROTEIN S DECREASED [None]
  - RED BLOOD CELLS CSF POSITIVE [None]
  - SUBDURAL HAEMORRHAGE [None]
